FAERS Safety Report 19201637 (Version 2)
Quarter: 2021Q2

REPORT INFORMATION
  Report Type: Other
  Country: DE (occurrence: DE)
  Receive Date: 20210430
  Receipt Date: 20210506
  Transmission Date: 20210717
  Serious: Yes (Other)
  Sender: FDA-Public Use
  Company Number: DE-ROCHE-2816689

PATIENT
  Age: 34 Year
  Sex: Female
  Weight: 51 kg

DRUGS (5)
  1. OCRELIZUMAB. [Suspect]
     Active Substance: OCRELIZUMAB
     Dosage: THERAPY STARTED AND ENDED ON 14/DEC/2020.
     Route: 042
     Dates: start: 20201214, end: 20201214
  2. CORTISON [Concomitant]
     Active Substance: CORTISONE ACETATE
     Dates: start: 20201214, end: 20201214
  3. FENISTIL [Concomitant]
     Active Substance: DIMETHINDENE
     Dates: start: 20201214, end: 20201214
  4. OCRELIZUMAB. [Suspect]
     Active Substance: OCRELIZUMAB
     Indication: MULTIPLE SCLEROSIS
     Dosage: 2X DOSES OF 300MG
     Route: 042
     Dates: start: 201805
  5. PARACETAMOL [Concomitant]
     Active Substance: ACETAMINOPHEN
     Dates: start: 20201214, end: 20201214

REACTIONS (2)
  - Maternal exposure before pregnancy [Unknown]
  - Abortion spontaneous [Unknown]

NARRATIVE: CASE EVENT DATE: 20210318
